FAERS Safety Report 4414000-9 (Version None)
Quarter: 2004Q3

REPORT INFORMATION
  Report Type: 
  Country: None (occurrence: None)
  Receive Date: 20040728
  Receipt Date: 20040715
  Transmission Date: 20050211
  Serious: Yes (Hospitalization)
  Sender: FDA-Public Use
  Company Number: GB-JNJFOC-20040704221

PATIENT
  Age: 33 Year
  Sex: Female
  Weight: 49 kg

DRUGS (23)
  1. NORETHISTERONE (NORETHISTERONE) [Suspect]
     Indication: MENSTRUAL DISORDER
     Dosage: 5 MG, 3 IN 1 DAY, ORAL
     Route: 048
  2. GLEEVEC [Concomitant]
  3. AUGMENTIN '125' [Concomitant]
  4. BACLOFEN [Concomitant]
  5. ACYCLOVIR [Concomitant]
  6. FLUCONAZOLE [Concomitant]
  7. DICLOFENAC [Concomitant]
  8. ACETAMINOPHEN [Concomitant]
  9. KETAMINE HCL [Concomitant]
  10. AMITRIPTYLINE HCL [Concomitant]
  11. MIDAZOLAM [Concomitant]
  12. FLUDARABINE PHOSPHATE [Concomitant]
  13. CYTARABINE [Concomitant]
  14. IDARUBICIN HCL [Concomitant]
  15. AMIKACIN [Concomitant]
  16. IMIPENEM [Concomitant]
  17. LANSOPRAZOLE [Concomitant]
  18. TAZOCIN (PIP/TAZO) [Concomitant]
  19. DIAZEPAM [Concomitant]
  20. MOVICOL (NULYTELY) [Concomitant]
  21. DIAMORPHINE [Concomitant]
  22. HALOPERIDOL [Concomitant]
  23. ONDANSETRON [Concomitant]

REACTIONS (2)
  - BLOOD BILIRUBIN INCREASED [None]
  - JAUNDICE [None]
